FAERS Safety Report 7274492-7 (Version None)
Quarter: 2011Q1

REPORT INFORMATION
  Report Type: 
  Country: None (occurrence: None)
  Receive Date: 20110204
  Receipt Date: 20110131
  Transmission Date: 20110831
  Serious: Yes (Other)
  Sender: FDA-Public Use
  Company Number: US-ABBOTT-11P-163-0701651-00

PATIENT
  Age: 50 Year
  Sex: Male
  Weight: 85.3 kg

DRUGS (21)
  1. DEPAKOTE [Suspect]
     Indication: PRODUCT USED FOR UNKNOWN INDICATION
     Dosage: 500MG IN AM; 1000MG PM OR 2000 MG
     Route: 048
  2. CHANTIX [Suspect]
     Indication: EX-TOBACCO USER
     Route: 048
     Dates: start: 20110112
  3. VYTORIN [Concomitant]
     Indication: BLOOD TRIGLYCERIDES ABNORMAL
  4. SPIRIVA [Concomitant]
     Indication: RESPIRATORY DISORDER
  5. TRICOR [Concomitant]
     Indication: BLOOD TRIGLYCERIDES ABNORMAL
  6. PERCOCET [Concomitant]
     Indication: SURGERY
     Dosage: 10/225MG
  7. COMBIVENT [Concomitant]
     Indication: RESPIRATORY DISORDER
  8. GEODON [Concomitant]
     Indication: BIPOLAR DISORDER
  9. CLONIDINE [Concomitant]
     Indication: OESOPHAGEAL SPASM
  10. TRICOR [Concomitant]
     Indication: BLOOD CHOLESTEROL ABNORMAL
  11. CLONIDINE [Concomitant]
     Indication: ANALGESIC THERAPY
  12. MARIJUANA [Concomitant]
     Indication: PRODUCT USED FOR UNKNOWN INDICATION
  13. NEXIUM [Concomitant]
     Indication: DYSPEPSIA
  14. METOPROLOL [Concomitant]
     Indication: CARDIAC MURMUR
  15. VICODIN [Concomitant]
     Indication: PRODUCT USED FOR UNKNOWN INDICATION
  16. MESNEX [Concomitant]
     Indication: PRODUCT USED FOR UNKNOWN INDICATION
  17. HYDROCHLOROTHIAZIDE [Concomitant]
     Indication: BLOOD PRESSURE ABNORMAL
  18. VYTORIN [Concomitant]
     Indication: BLOOD CHOLESTEROL
  19. SYMBICORT [Concomitant]
     Indication: RESPIRATORY DISORDER
     Dosage: 160/4.5 MCG
  20. POTASSIUM CHLORIDE [Concomitant]
     Indication: BLOOD POTASSIUM DECREASED
  21. ACETYLSALICYLIC ACID [Concomitant]
     Indication: PRODUCT USED FOR UNKNOWN INDICATION

REACTIONS (5)
  - SOMNOLENCE [None]
  - VISUAL IMPAIRMENT [None]
  - TREMOR [None]
  - FEELING DRUNK [None]
  - INCORRECT DOSE ADMINISTERED [None]
